FAERS Safety Report 9707553 (Version 1)
Quarter: 2013Q4

REPORT INFORMATION
  Report Type: Spontaneous
  Country: GB (occurrence: None)
  Receive Date: 20131121
  Receipt Date: 20131121
  Transmission Date: 20140711
  Serious: Yes (Life-Threatening, Hospitalization)
  Sender: FDA-Public Use
  Company Number: AUR-APL-2013-09672

PATIENT
  Age: 89 Year
  Sex: Male

DRUGS (4)
  1. CLOPIDOGREL [Suspect]
     Indication: CEREBROVASCULAR ACCIDENT PROPHYLAXIS
     Dosage: 75 MG (75 MG, 1 IN 1 D), ORAL
     Route: 048
     Dates: start: 20121129, end: 20131028
  2. METOCLOPRAMIDE (METOCLOPRAMIDE) [Concomitant]
  3. PARACETAMOL (PARACETAMOL) [Concomitant]
  4. RANITIDINE (RANITIDINE) [Concomitant]

REACTIONS (2)
  - Melaena [None]
  - Constipation [None]
